FAERS Safety Report 13464921 (Version 1)
Quarter: 2017Q2

REPORT INFORMATION
  Report Type: Report from Study
  Country: US (occurrence: US)
  Receive Date: 20170420
  Receipt Date: 20170420
  Transmission Date: 20170830
  Serious: Yes (Other)
  Sender: FDA-Public Use
  Company Number: US-BEH-2017079578

PATIENT
  Age: 57 Year
  Sex: Female
  Weight: 136.5 kg

DRUGS (34)
  1. ZEMAIRA [Suspect]
     Active Substance: .ALPHA.1-PROTEINASE INHIBITOR HUMAN
     Dosage: UNK
     Route: 042
     Dates: start: 20170331
  2. BACTRIM [Concomitant]
     Active Substance: SULFAMETHOXAZOLE\TRIMETHOPRIM
  3. VITAMIN D3 [Concomitant]
     Active Substance: CHOLECALCIFEROL
  4. NOXAFIL [Concomitant]
     Active Substance: POSACONAZOLE
  5. STOOL SOFTENER (DOCUSATE) [Concomitant]
     Active Substance: DOCUSATE
  6. EPIPEN [Concomitant]
     Active Substance: EPINEPHRINE
  7. LYRICA [Concomitant]
     Active Substance: PREGABALIN
  8. VICTOZA [Concomitant]
     Active Substance: LIRAGLUTIDE
  9. VITAMIN C [Concomitant]
     Active Substance: ASCORBIC ACID
  10. HEPARIN [Concomitant]
     Active Substance: HEPARIN SODIUM
  11. POTASSIUM CL [Concomitant]
     Active Substance: POTASSIUM CHLORIDE
  12. NOVOLOG [Concomitant]
     Active Substance: INSULIN ASPART
  13. XYZAL [Concomitant]
     Active Substance: LEVOCETIRIZINE DIHYDROCHLORIDE
  14. MULTIVITAMIN                       /00097801/ [Concomitant]
     Active Substance: VITAMINS
  15. ZEMAIRA [Suspect]
     Active Substance: .ALPHA.1-PROTEINASE INHIBITOR HUMAN
     Indication: ALPHA-1 ANTI-TRYPSIN DEFICIENCY
     Dosage: 60 MG/KG, QW, 6 VIALS
     Route: 042
     Dates: start: 20120131
  16. AZITHROMYCIN ANHYDROUS. [Concomitant]
     Active Substance: AZITHROMYCIN ANHYDROUS
  17. SODIUM CHLORIDE. [Concomitant]
     Active Substance: SODIUM CHLORIDE
  18. ALLEGRA-D                          /01367401/ [Concomitant]
  19. XANAX [Concomitant]
     Active Substance: ALPRAZOLAM
  20. ZANTAC [Concomitant]
     Active Substance: RANITIDINE HYDROCHLORIDE
  21. SENOKOT [Concomitant]
     Active Substance: SENNOSIDES
  22. PROGRAF [Concomitant]
     Active Substance: TACROLIMUS\TACROLIMUS ANHYDROUS
  23. SYMBICORT [Concomitant]
     Active Substance: BUDESONIDE\FORMOTEROL FUMARATE DIHYDRATE
  24. SINUS DECONGESTANT [Concomitant]
  25. LEVEMIR [Concomitant]
     Active Substance: INSULIN DETEMIR
  26. CELLCEPT [Concomitant]
     Active Substance: MYCOPHENOLATE MOFETIL\MYCOPHENOLATE MOFETIL HYDROCHLORIDE
  27. ACYCLOVIR                          /00587301/ [Concomitant]
     Active Substance: ACYCLOVIR
  28. NEXIUM [Concomitant]
     Active Substance: ESOMEPRAZOLE MAGNESIUM
  29. DIPHENHYDRAMINE HYDROCHLORIDE. [Concomitant]
     Active Substance: DIPHENHYDRAMINE HYDROCHLORIDE
  30. PREDNISONE. [Concomitant]
     Active Substance: PREDNISONE
  31. LIDOCAINE. [Concomitant]
     Active Substance: LIDOCAINE
  32. CALCIUM [Concomitant]
     Active Substance: CALCIUM
  33. SINGULAIR [Concomitant]
     Active Substance: MONTELUKAST SODIUM
  34. MAGNESIUM OXIDE. [Concomitant]
     Active Substance: MAGNESIUM OXIDE

REACTIONS (5)
  - Corona virus infection [Unknown]
  - Latent tuberculosis [Unknown]
  - Unevaluable event [Unknown]
  - Respiratory muscle weakness [Unknown]
  - Infection in an immunocompromised host [Recovering/Resolving]

NARRATIVE: CASE EVENT DATE: 20170405
